FAERS Safety Report 5327227-9 (Version None)
Quarter: 2007Q2

REPORT INFORMATION
  Report Type: 
  Country: None (occurrence: None)
  Receive Date: 20070517
  Receipt Date: 20070511
  Transmission Date: 20071010
  Serious: Yes (Life-Threatening)
  Sender: FDA-Public Use
  Company Number: KR-BAYER-200712192GDS

PATIENT
  Age: 56 Year
  Sex: Male
  Weight: 75 kg

DRUGS (4)
  1. SORAFENIB [Suspect]
     Indication: RENAL CELL CARCINOMA STAGE UNSPECIFIED
     Dosage: TOTAL DAILY DOSE: 800 MG
     Route: 048
     Dates: start: 20061130, end: 20070130
  2. SORAFENIB [Suspect]
     Route: 048
     Dates: start: 20070201, end: 20070213
  3. SORAFENIB [Suspect]
     Dosage: TOTAL DAILY DOSE: 800 MG
     Route: 048
     Dates: start: 20070227, end: 20070409
  4. SORAFENIB [Suspect]
     Route: 048
     Dates: start: 20070410, end: 20070410

REACTIONS (6)
  - AORTIC DISSECTION [None]
  - ARTERY DISSECTION [None]
  - DERMATITIS [None]
  - DISEASE PROGRESSION [None]
  - HYPERTENSION [None]
  - PAIN [None]
